FAERS Safety Report 4794247-2 (Version None)
Quarter: 2005Q4

REPORT INFORMATION
  Report Type: 
  Country: None (occurrence: None)
  Receive Date: 20051011
  Receipt Date: 20050927
  Transmission Date: 20060501
  Serious: Yes (Other)
  Sender: FDA-Public Use
  Company Number: US-GLAXOSMITHKLINE-A0576092A

PATIENT
  Age: 51 Year
  Sex: Female

DRUGS (11)
  1. PAXIL CR [Suspect]
     Indication: DEPRESSION
     Dosage: 50MG PER DAY
     Route: 048
     Dates: start: 20050101, end: 20050330
  2. NEXIUM [Concomitant]
  3. XANAX [Concomitant]
  4. DIOVAN [Concomitant]
  5. ZANAFLEX [Concomitant]
  6. CLARINEX [Concomitant]
  7. VIACTIV [Concomitant]
  8. VITAMIN [Concomitant]
  9. DARVOCET-N 100 [Concomitant]
  10. VITAMIN D [Concomitant]
  11. AMBIEN [Concomitant]

REACTIONS (13)
  - BACK PAIN [None]
  - DRUG INEFFECTIVE [None]
  - DRUG WITHDRAWAL SYNDROME [None]
  - FEELING HOT [None]
  - FEELING HOT AND COLD [None]
  - FORMICATION [None]
  - LOWER LIMB FRACTURE [None]
  - PAIN IN EXTREMITY [None]
  - PANIC ATTACK [None]
  - PRURITUS [None]
  - SUFFOCATION FEELING [None]
  - SUICIDAL IDEATION [None]
  - TREMOR [None]
